FAERS Safety Report 16672357 (Version 1)
Quarter: 2019Q3

REPORT INFORMATION
  Report Type: Spontaneous
  Country: DE (occurrence: DE)
  Receive Date: 20190806
  Receipt Date: 20190806
  Transmission Date: 20191004
  Serious: Yes (Hospitalization)
  Sender: FDA-Public Use
  Company Number: DE-ACCORD-150347

PATIENT
  Age: 66 Year
  Sex: Female
  Weight: 78 kg

DRUGS (14)
  1. GEMCITABINE/GEMCITABINE HYDROCHLORIDE [Suspect]
     Active Substance: GEMCITABINE\GEMCITABINE HYDROCHLORIDE
     Indication: PRODUCT USED FOR UNKNOWN INDICATION
     Dosage: 1000 MG / MT SQ KOF, WEEKLY, SOLUTION FOR INJECTION / INFUSION
     Route: 042
  2. VERTIGOHEEL [Concomitant]
     Active Substance: HOMEOPATHICS
     Dosage: B.B.
  3. LEVOTHYROXINE. [Concomitant]
     Active Substance: LEVOTHYROXINE
     Dosage: 50 MICROG, 1-0-0, TABLETTEN
     Route: 048
  4. MOVICOL [Concomitant]
     Active Substance: POLYETHYLENE GLYCOL 3350\POTASSIUM CHLORIDE\SODIUM BICARBONATE\SODIUM CHLORIDE
     Dosage: 1-1-0
     Route: 048
  5. METAMIZOLE SODIUM [Concomitant]
     Active Substance: METAMIZOLE SODIUM
     Dosage: 500 MG, 2-2-2-2, TABLET
     Route: 048
  6. CISPLATIN. [Suspect]
     Active Substance: CISPLATIN
     Indication: PRODUCT USED FOR UNKNOWN INDICATION
     Dosage: 25 MG / MT SQ KOF, EVERY THREE WEEKS, SOLUTION FOR INJECTION / INFUSION
     Route: 042
  7. LAXOBERAL [Concomitant]
     Active Substance: SODIUM PICOSULFATE
     Dosage: 0-0-0-15, TROPFEN
     Route: 048
  8. NEUREXAN [Concomitant]
     Active Substance: HOMEOPATHICS
     Dosage: B.B., TABLETTEN
     Route: 048
  9. CLEXANE [Concomitant]
     Active Substance: ENOXAPARIN SODIUM
     Dosage: 0.8 ML, 1-0-1,  INJECTION / INFUSION
     Route: 058
  10. IBEROGAST [Concomitant]
     Active Substance: HERBALS
     Dosage: B.B.,  DROPS
     Route: 048
  11. VOMACUR [Concomitant]
     Active Substance: DIMENHYDRINATE
     Dosage: B.B.
  12. BISOPROLOL [Concomitant]
     Active Substance: BISOPROLOL
     Dosage: 5 MG, 1-0-0, TABLETTEN
     Route: 048
  13. RANITIDINE. [Concomitant]
     Active Substance: RANITIDINE
     Dosage: 150 MG, 0-0-1, TABLETTEN
     Route: 048
  14. MCP RETARD [Concomitant]
     Dosage: 30 MG, 1-0-1, RETARD-TABLET
     Route: 048

REACTIONS (1)
  - Pyrexia [Recovered/Resolved]

NARRATIVE: CASE EVENT DATE: 20161129
